FAERS Safety Report 9417226 (Version 1)
Quarter: 2013Q3

REPORT INFORMATION
  Report Type: Spontaneous
  Country: US (occurrence: US)
  Receive Date: 20130724
  Receipt Date: 20130724
  Transmission Date: 20140515
  Serious: No
  Sender: FDA-Public Use
  Company Number: US-BAUSCH-BL-2013-003578

PATIENT
  Age: 66 Year
  Sex: Female

DRUGS (1)
  1. OPCON-A [Suspect]
     Indication: EYE PRURITUS
     Dosage: 1 DROP IN EACH EYE, TWO TIMES PER DAY
     Route: 047
     Dates: start: 201305, end: 201306

REACTIONS (1)
  - Drug ineffective [Recovered/Resolved]
